FAERS Safety Report 8875485 (Version 1)
Quarter: 2012Q4

REPORT INFORMATION
  Report Type: Report from Study
  Country: NL (occurrence: NL)
  Receive Date: 20121029
  Receipt Date: 20121029
  Transmission Date: 20130627
  Serious: Yes (Hospitalization)
  Sender: FDA-Public Use
  Company Number: NL-ROCHE-1109615

PATIENT
  Age: 53 Year
  Sex: Female

DRUGS (4)
  1. BEVACIZUMAB [Suspect]
     Indication: BREAST CANCER METASTATIC
     Dosage: last dose prior to SAE on 31/Jul/2012
     Route: 042
     Dates: start: 20120605
  2. PACLITAXEL [Suspect]
     Indication: BREAST CANCER METASTATIC
     Dosage: last dose prior to SAE on 31/Jul/2012
     Route: 042
     Dates: start: 20120605
  3. METOCLOPRAMIDE [Concomitant]
     Dosage: 4dd
     Route: 065
  4. PARACETAMOL [Concomitant]

REACTIONS (1)
  - Gastroenteritis viral [Recovered/Resolved]
